FAERS Safety Report 6509538-4 (Version None)
Quarter: 2009Q4

REPORT INFORMATION
  Report Type: 
  Country: None (occurrence: None)
  Receive Date: 20091222
  Receipt Date: 20091214
  Transmission Date: 20100525
  Serious: Yes (Hospitalization, Other)
  Sender: FDA-Public Use
  Company Number: JP-BAYER-200912215BYL

PATIENT
  Age: 60 Year
  Sex: Male
  Weight: 65 kg

DRUGS (12)
  1. NEXAVAR [Suspect]
     Indication: RENAL CELL CARCINOMA
     Dosage: TOTAL DAILY DOSE: 800 MG  UNIT DOSE: 200 MG
     Route: 048
     Dates: start: 20080513, end: 20090327
  2. NEXAVAR [Suspect]
     Dosage: TOTAL DAILY DOSE: 800 MG  UNIT DOSE: 200 MG
     Route: 048
     Dates: start: 20090512, end: 20090708
  3. NEXAVAR [Suspect]
     Dosage: TOTAL DAILY DOSE: 400 MG  UNIT DOSE: 200 MG
     Route: 048
  4. BLOPRESS [Concomitant]
     Dosage: TOTAL DAILY DOSE: 4 MG
     Route: 048
     Dates: start: 20071027, end: 20080709
  5. BLOPRESS [Concomitant]
     Dosage: TOTAL DAILY DOSE: 1 DF  UNIT DOSE: 1 DF
     Route: 048
     Dates: start: 20081016, end: 20090415
  6. BLOPRESS [Concomitant]
     Dosage: TOTAL DAILY DOSE: 1 DF  UNIT DOSE: 1 DF
     Route: 048
     Dates: start: 20080710, end: 20081015
  7. NORVASC [Concomitant]
     Dosage: TOTAL DAILY DOSE: 5 MG
     Route: 048
     Dates: start: 20071218, end: 20081015
  8. NORVASC [Concomitant]
     Dosage: TOTAL DAILY DOSE: 1 DF  UNIT DOSE: 1 DF
     Route: 048
     Dates: start: 20081016, end: 20090415
  9. AVISHOT [Concomitant]
     Dosage: TOTAL DAILY DOSE: 50 MG  UNIT DOSE: 25 MG
     Route: 048
     Dates: start: 20071218, end: 20080709
  10. AVISHOT [Concomitant]
     Dosage: AS USED: 2 DF  UNIT DOSE: 1 DF
     Route: 048
     Dates: start: 20080710, end: 20090415
  11. FLIVAS [Concomitant]
     Dosage: AS USED: 25 MG  UNIT DOSE: 25 MG
     Route: 048
     Dates: start: 20081016, end: 20090415
  12. TAKEPRON [Concomitant]
     Dosage: TOTAL DAILY DOSE: 1 DF  UNIT DOSE: 1 DF
     Route: 048
     Dates: start: 20090121, end: 20090415

REACTIONS (4)
  - ANAEMIA [None]
  - DIARRHOEA [None]
  - METASTASES TO STOMACH [None]
  - PALMAR-PLANTAR ERYTHRODYSAESTHESIA SYNDROME [None]
